FAERS Safety Report 5199544-7 (Version None)
Quarter: 2006Q4

REPORT INFORMATION
  Report Type: 
  Country: None (occurrence: None)
  Receive Date: 20061229
  Receipt Date: 20061218
  Transmission Date: 20070319
  Serious: Yes (Disabling, Other)
  Sender: FDA-Public Use
  Company Number: 2006RR-04324

PATIENT
  Age: 72 Year
  Sex: Female
  Weight: 70 kg

DRUGS (9)
  1. DILTIAZEM HYDROCHLORIDE [Suspect]
     Indication: ANGINA PECTORIS
     Dosage: 240 MG, QD, ORAL
     Route: 048
     Dates: start: 20060714, end: 20060729
  2. SIMVASTATIN [Suspect]
     Indication: ANGINA PECTORIS
     Dosage: 20 MG, QD, ORAL
     Route: 048
     Dates: start: 20060714, end: 20060725
  3. AMLODIPINE [Concomitant]
  4. ASPIRIN [Concomitant]
  5. LACTULOSE [Concomitant]
  6. OMEPRAZOLE [Concomitant]
  7. SALBUTAMOL (SALBUTAMOL) [Concomitant]
  8. SERETIDE [Concomitant]
  9. TIOTROPIUM BROMIDE [Concomitant]

REACTIONS (11)
  - DERMATITIS ALLERGIC [None]
  - ECZEMA [None]
  - EOSINOPHILIA [None]
  - HYPERSENSITIVITY [None]
  - MALAISE [None]
  - PAIN IN EXTREMITY [None]
  - PRURITUS [None]
  - PURPURA [None]
  - RASH ERYTHEMATOUS [None]
  - SKIN LESION [None]
  - URTICARIA [None]
